FAERS Safety Report 19890678 (Version 3)
Quarter: 2021Q4

REPORT INFORMATION
  Report Type: Report from Study
  Country: US (occurrence: US)
  Receive Date: 20210927
  Receipt Date: 20211129
  Transmission Date: 20220303
  Serious: Yes (Hospitalization)
  Sender: FDA-Public Use
  Company Number: US-BIOGEN-2021BI01050975

PATIENT
  Sex: Female
  Weight: 76.726 kg

DRUGS (18)
  1. TYSABRI [Suspect]
     Active Substance: NATALIZUMAB
     Indication: Multiple sclerosis
     Route: 065
  2. TYSABRI [Suspect]
     Active Substance: NATALIZUMAB
     Route: 065
     Dates: start: 20210714, end: 20210714
  3. TYSABRI [Suspect]
     Active Substance: NATALIZUMAB
     Route: 042
  4. LITHOBID [Concomitant]
     Active Substance: LITHIUM CARBONATE
     Indication: Bipolar disorder
     Route: 048
     Dates: start: 20210506
  5. HYDRODIURIL [Concomitant]
     Active Substance: HYDROCHLOROTHIAZIDE
     Indication: Product used for unknown indication
     Route: 065
  6. ASPIRIN [Concomitant]
     Active Substance: ASPIRIN
     Indication: Product used for unknown indication
     Dosage: WITH BREAKFAST
     Route: 048
     Dates: start: 20210521, end: 20210813
  7. LIPITOR [Concomitant]
     Active Substance: ATORVASTATIN CALCIUM
     Indication: Product used for unknown indication
     Route: 048
     Dates: start: 20210506
  8. LIORSEAL [Concomitant]
     Indication: Product used for unknown indication
     Route: 048
     Dates: start: 20210506, end: 20210716
  9. KLONOPIN [Concomitant]
     Active Substance: CLONAZEPAM
     Indication: Anxiety
     Dosage: PRN
     Route: 048
     Dates: start: 20210510, end: 20210516
  10. GYNELOTRIMIN [Concomitant]
     Indication: Product used for unknown indication
     Dosage: 1%
     Route: 065
     Dates: start: 20210510
  11. LEXAPRO [Concomitant]
     Active Substance: ESCITALOPRAM OXALATE
     Indication: Product used for unknown indication
     Route: 048
     Dates: start: 20210329, end: 20210831
  12. FOLVITE [Concomitant]
     Active Substance: FOLIC ACID
     Indication: Product used for unknown indication
     Dosage: BEFORE BREAKFAST
     Route: 048
     Dates: start: 20210518, end: 20210927
  13. LOPRESSOR [Concomitant]
     Active Substance: METOPROLOL TARTRATE
     Indication: Product used for unknown indication
     Route: 048
  14. SINGULAIR [Concomitant]
     Active Substance: MONTELUKAST SODIUM
     Indication: Product used for unknown indication
     Dosage: NIGHTLY
     Route: 048
     Dates: start: 20210506
  15. TRILEPTAL [Concomitant]
     Active Substance: OXCARBAZEPINE
     Indication: Bipolar disorder
     Route: 048
     Dates: start: 20210831
  16. PROTONIX [Concomitant]
     Active Substance: PANTOPRAZOLE SODIUM
     Indication: Hypothyroidism
     Dosage: BEFORE BREAKFAST
     Route: 048
  17. LEVOPHED [Concomitant]
     Active Substance: NOREPINEPHRINE BITARTRATE
     Indication: Hypotension
     Route: 065
  18. SYNTHROID [Concomitant]
     Active Substance: LEVOTHYROXINE SODIUM
     Indication: Product used for unknown indication
     Dosage: EVERY MORNING BEFORE BREAKFAST
     Route: 065
     Dates: start: 20210506, end: 20210819

REACTIONS (2)
  - Marburg^s variant multiple sclerosis [Unknown]
  - Multiple sclerosis [Unknown]
